FAERS Safety Report 6711348-X (Version None)
Quarter: 2010Q2

REPORT INFORMATION
  Report Type: 
  Country: None (occurrence: None)
  Receive Date: 20100505
  Receipt Date: 20100427
  Transmission Date: 20101027
  Serious: Yes (Hospitalization)
  Sender: FDA-Public Use
  Company Number: US-ELI_LILLY_AND_COMPANY-US201004003485

PATIENT
  Sex: Female
  Weight: 68.934 kg

DRUGS (20)
  1. PEMETREXED [Suspect]
     Indication: NON-SMALL CELL LUNG CANCER
     Dosage: 500 MG/M2, OTHER
     Route: 042
     Dates: start: 20091221, end: 20100322
  2. PEMETREXED [Suspect]
     Dosage: 500 MG/M2, OTHER
     Route: 042
     Dates: start: 20100426
  3. CARBOPLATIN [Suspect]
     Indication: NON-SMALL CELL LUNG CANCER
     Dosage: 6 D/F, MONTHLY (1/M)
     Route: 042
     Dates: start: 20091221, end: 20100322
  4. CARBOPLATIN [Suspect]
     Dosage: 6 D/F, OTHER
     Route: 042
     Dates: start: 20100426
  5. BEVACIZUMAB [Suspect]
     Indication: NON-SMALL CELL LUNG CANCER
     Dosage: 15 MG/KG, OTHER
     Route: 042
     Dates: start: 20091221, end: 20100322
  6. BEVACIZUMAB [Suspect]
     Dosage: 15 MG/KG, OTHER
     Route: 042
     Dates: start: 20100426
  7. CYMBALTA [Concomitant]
     Indication: ANXIETY
     Dosage: 80 MG, DAILY (1/D)
     Dates: start: 20090101
  8. NEXIUM [Concomitant]
     Indication: GASTROOESOPHAGEAL REFLUX DISEASE
     Dosage: 40 MG, DAILY (1/D)
     Dates: start: 20080101
  9. TOPROL-XL [Concomitant]
     Indication: HYPERTENSION
     Dosage: 100 MG, DAILY (1/D)
     Dates: start: 20090101
  10. NORVASC [Concomitant]
     Indication: HYPERTENSION
     Dosage: 10 MG, DAILY (1/D)
     Dates: start: 20080101
  11. BENICAR [Concomitant]
     Indication: HYPERTENSION
     Dosage: UNK, UNK
     Dates: start: 20020101
  12. PLAQUENIL [Concomitant]
     Dosage: UNK, UNK
     Dates: start: 20080701
  13. SIMCOR [Concomitant]
     Indication: BLOOD CHOLESTEROL
     Dates: start: 20060101
  14. FISH OIL [Concomitant]
     Dates: start: 20000101
  15. ECOTRIN [Concomitant]
     Indication: PAIN
     Dates: start: 19970101
  16. VITAMIN B-12 [Concomitant]
     Dosage: UNK, UNK
     Dates: start: 20091130
  17. VITAMIN B-12 [Concomitant]
     Dates: start: 20100322
  18. VITAMIN B-12 [Concomitant]
     Dates: start: 20100426
  19. FOLIC ACID [Concomitant]
     Indication: SUPPLEMENTATION THERAPY
     Dates: start: 20091130
  20. BIAXIN [Concomitant]
     Indication: ANTIBIOTIC THERAPY
     Dates: start: 20100101

REACTIONS (2)
  - EPISTAXIS [None]
  - THROMBOCYTOPENIA [None]
